FAERS Safety Report 8814490 (Version 1)
Quarter: 2012Q4

REPORT INFORMATION
  Report Type: Spontaneous
  Country: US (occurrence: None)
  Receive Date: 20120926
  Receipt Date: 20120926
  Transmission Date: 20130627
  Serious: Yes (Death, Other)
  Sender: FDA-Public Use
  Company Number: TPA2012A06760

PATIENT
  Age: 81 Year
  Sex: Male

DRUGS (1)
  1. PIOGLITAZONE HYDROCHLORIDE [Suspect]
     Indication: TYPE 2 DIABETES MELLITUS
     Dates: start: 2005, end: 2009

REACTIONS (3)
  - Bladder cancer [None]
  - Cardiopulmonary failure [None]
  - Cerebrovascular accident [None]
